FAERS Safety Report 16474166 (Version 1)
Quarter: 2019Q2

REPORT INFORMATION
  Report Type: Spontaneous
  Country: CN (occurrence: CN)
  Receive Date: 20190625
  Receipt Date: 20190625
  Transmission Date: 20190711
  Serious: No
  Sender: FDA-Public Use
  Company Number: CN-B. BRAUN MEDICAL INC.-2069561

PATIENT
  Age: 43 Year
  Sex: Female
  Weight: 55.2 kg

DRUGS (1)
  1. HESPAN [Suspect]
     Active Substance: HETASTARCH\SODIUM CHLORIDE
     Indication: BLOOD VOLUME EXPANSION
     Route: 041
     Dates: start: 20190515, end: 20190515

REACTIONS (4)
  - Vomiting [None]
  - Flushing [None]
  - Dyspnoea [None]
  - Hyperhidrosis [None]
